FAERS Safety Report 10571454 (Version 2)
Quarter: 2014Q4

REPORT INFORMATION
  Report Type: Spontaneous
  Country: US (occurrence: US)
  Receive Date: 20141107
  Receipt Date: 20141107
  Transmission Date: 20150529
  Serious: No
  Sender: FDA-Public Use
  Company Number: US-GLAXOSMITHKLINE-A1089968A

PATIENT

DRUGS (11)
  1. CIALIS [Concomitant]
     Active Substance: TADALAFIL
  2. OMEGA 3 [Concomitant]
     Active Substance: OMEGA-3 FATTY ACIDS
  3. FISH OIL [Concomitant]
     Active Substance: FISH OIL
  4. TURMERIC [Concomitant]
     Active Substance: TURMERIC
  5. ARGININE [Concomitant]
     Active Substance: ARGININE
  6. RAPAFLO [Concomitant]
     Active Substance: SILODOSIN
  7. VOTRIENT [Suspect]
     Active Substance: PAZOPANIB HYDROCHLORIDE
     Indication: RENAL CANCER
     Dosage: 200 MG TABLETS, 800 MG PER DAY
     Route: 048
     Dates: start: 20140807, end: 20140915
  8. SIMVASTATIN. [Concomitant]
     Active Substance: SIMVASTATIN
  9. LISINOPRIL. [Concomitant]
     Active Substance: LISINOPRIL
  10. GLUCOSAMINE [Concomitant]
     Active Substance: GLUCOSAMINE
  11. MULTIVITAMIN [Concomitant]
     Active Substance: VITAMINS

REACTIONS (4)
  - Rash erythematous [Unknown]
  - Dysphonia [Unknown]
  - Blood pressure fluctuation [Unknown]
  - Skin exfoliation [Unknown]

NARRATIVE: CASE EVENT DATE: 20140915
